FAERS Safety Report 6620802-0 (Version None)
Quarter: 2010Q1

REPORT INFORMATION
  Report Type: 
  Country: None (occurrence: None)
  Receive Date: 20100309
  Receipt Date: 20100129
  Transmission Date: 20100710
  Serious: Yes (Death, Hospitalization)
  Sender: FDA-Public Use
  Company Number: JP-SANOFI-AVENTIS-2009SA004861

PATIENT
  Age: 76 Year
  Sex: Male
  Weight: 71 kg

DRUGS (18)
  1. PLAVIX [Suspect]
     Route: 048
     Dates: start: 20081014, end: 20081014
  2. PLAVIX [Suspect]
     Route: 048
     Dates: start: 20081015, end: 20090528
  3. ASPIRIN [Concomitant]
     Indication: ACUTE CORONARY SYNDROME
     Route: 048
     Dates: start: 20081014, end: 20090528
  4. ASPIRIN [Concomitant]
     Route: 048
     Dates: start: 20081014, end: 20090528
  5. BLOPRESS [Concomitant]
     Indication: ACUTE CORONARY SYNDROME
     Route: 048
     Dates: start: 20081015, end: 20090528
  6. BLOPRESS [Concomitant]
     Route: 048
     Dates: start: 20081015, end: 20090528
  7. MUCOSTA [Concomitant]
     Route: 048
     Dates: start: 20081015, end: 20090528
  8. GASTER [Concomitant]
     Route: 048
     Dates: start: 20081015, end: 20090528
  9. ALLEGRA [Concomitant]
     Route: 048
     Dates: start: 20081015, end: 20090528
  10. ITAVASTATIN [Concomitant]
     Indication: ACUTE CORONARY SYNDROME
     Route: 048
     Dates: start: 20081015, end: 20090528
  11. ITAVASTATIN [Concomitant]
     Route: 048
     Dates: start: 20081015, end: 20090528
  12. SIGMART [Concomitant]
     Indication: ACUTE CORONARY SYNDROME
     Route: 048
     Dates: start: 20081017, end: 20090528
  13. SIGMART [Concomitant]
     Route: 048
     Dates: start: 20081017, end: 20090528
  14. ARTIST [Concomitant]
     Indication: ACUTE CORONARY SYNDROME
     Route: 048
     Dates: start: 20081020, end: 20090528
  15. ARTIST [Concomitant]
     Route: 048
     Dates: start: 20081020, end: 20090528
  16. FLUITRAN [Concomitant]
     Indication: ACUTE CORONARY SYNDROME
     Route: 048
     Dates: start: 20081024, end: 20090528
  17. FLUITRAN [Concomitant]
     Route: 048
     Dates: start: 20081024, end: 20090528
  18. UNIPHYL [Concomitant]
     Route: 048
     Dates: start: 20081024, end: 20090528

REACTIONS (1)
  - PNEUMONIA [None]
